FAERS Safety Report 7670041-X (Version None)
Quarter: 2011Q3

REPORT INFORMATION
  Report Type: 
  Country: None (occurrence: None)
  Receive Date: 20110808
  Receipt Date: 20110318
  Transmission Date: 20111222
  Serious: No
  Sender: FDA-Public Use
  Company Number: US-BAYER-2011-067625

PATIENT
  Sex: Female

DRUGS (2)
  1. PRENATAL VITAMINS [Concomitant]
  2. ASPIRIN [Suspect]
     Dosage: 1 DF, UNK
     Route: 048

REACTIONS (1)
  - NAUSEA [None]
